FAERS Safety Report 8583309-X (Version None)
Quarter: 2012Q3

REPORT INFORMATION
  Report Type: 
  Country: None (occurrence: None)
  Receive Date: 20120809
  Receipt Date: 20120807
  Transmission Date: 20120928
  Serious: Yes (Death, Hospitalization, Other)
  Sender: FDA-Public Use
  Company Number: CA-ABBOTT-12P-028-0963101-00

PATIENT
  Sex: Female
  Weight: 49.94 kg

DRUGS (17)
  1. HUMIRA [Suspect]
     Indication: RHEUMATOID ARTHRITIS
     Route: 058
     Dates: start: 20111021, end: 20120713
  2. TYLENOL [Suspect]
     Indication: PAIN
  3. MEPROLOL [Concomitant]
     Indication: ARRHYTHMIA
     Route: 048
  4. TYLENOL W/ CODEINE NO. 2 [Suspect]
     Indication: PAIN
     Route: 048
  5. TOLOXIN [Concomitant]
     Indication: ARRHYTHMIA
     Route: 048
  6. WARFARIN SODIUM [Concomitant]
     Indication: ANTICOAGULANT THERAPY
     Dosage: 3-4 MG DAILY
     Route: 048
  7. METHOTREXATE [Concomitant]
     Dosage: INCREASED, UNSPECIFIED AMOUNT
     Route: 048
  8. FOLIC ACID [Concomitant]
     Indication: VITAMIN SUPPLEMENTATION
     Route: 048
  9. RABEPRAZOLE SODIUM [Concomitant]
     Indication: GASTRIC DISORDER
     Route: 048
  10. OXEZE [Concomitant]
     Indication: CARDIAC FAILURE CONGESTIVE
     Route: 055
  11. FUROSEMIDE [Concomitant]
     Indication: DIURETIC THERAPY
  12. VITAMIN B-12 [Concomitant]
     Indication: ANAEMIA
     Route: 048
  13. CALCIUM [Concomitant]
     Indication: OSTEOPOROSIS
     Route: 048
  14. MIRTAZAPINE [Concomitant]
     Indication: SLEEP DISORDER THERAPY
     Route: 048
  15. METHOTREXATE [Concomitant]
     Indication: RHEUMATOID ARTHRITIS
     Dosage: DECREASED, UNSPECIFIED AMOUNT
     Route: 048
  16. EURO-FER [Concomitant]
     Indication: MINERAL SUPPLEMENTATION
     Route: 048
  17. VITAMIN D [Concomitant]
     Indication: OSTEOPOROSIS
     Route: 048

REACTIONS (11)
  - LISTERIOSIS [None]
  - CARDIAC FAILURE CONGESTIVE [None]
  - LIVER INJURY [None]
  - RENAL IMPAIRMENT [None]
  - PNEUMONIA [None]
  - HYPERHIDROSIS [None]
  - INFECTION [None]
  - SEPTIC SHOCK [None]
  - PYREXIA [None]
  - ARRHYTHMIA [None]
  - DEATH [None]
